FAERS Safety Report 24015695 (Version 1)
Quarter: 2024Q2

REPORT INFORMATION
  Report Type: Spontaneous
  Country: US (occurrence: US)
  Receive Date: 20240626
  Receipt Date: 20240626
  Transmission Date: 20240715
  Serious: No
  Sender: FDA-Public Use
  Company Number: US-ELI_LILLY_AND_COMPANY-US202406017360

PATIENT
  Age: 72 Year
  Sex: Female

DRUGS (2)
  1. HUMALOG KWIKPEN [Suspect]
     Active Substance: INSULIN LISPRO
     Indication: Type 2 diabetes mellitus
     Dosage: 8 U, UNKNOWN
     Route: 058
  2. LANTUS [Concomitant]
     Active Substance: INSULIN GLARGINE
     Indication: Type 2 diabetes mellitus
     Dosage: UNK, DAILY

REACTIONS (3)
  - Product storage error [Unknown]
  - Drug ineffective [Unknown]
  - Blood glucose increased [Not Recovered/Not Resolved]
